FAERS Safety Report 9857420 (Version 1)
Quarter: 2014Q1

REPORT INFORMATION
  Report Type: Spontaneous
  Country: JP (occurrence: JP)
  Receive Date: 20140131
  Receipt Date: 20140131
  Transmission Date: 20141002
  Serious: Yes (Hospitalization)
  Sender: FDA-Public Use
  Company Number: JP-AMGEN-JPNSP2014006296

PATIENT
  Age: 88 Year
  Sex: Female

DRUGS (1)
  1. PRALIA [Suspect]
     Indication: OSTEOPOROSIS
     Dosage: 60MG, Q6MO, ONCE
     Route: 065

REACTIONS (1)
  - Tonic convulsion [Not Recovered/Not Resolved]
